FAERS Safety Report 7086134-4 (Version None)
Quarter: 2010Q4

REPORT INFORMATION
  Report Type: 
  Country: None (occurrence: None)
  Receive Date: 20101105
  Receipt Date: 20101028
  Transmission Date: 20110411
  Serious: Yes (Other)
  Sender: FDA-Public Use
  Company Number: B0682871A

PATIENT
  Age: 62 Year
  Sex: Female

DRUGS (1)
  1. AUGMENTIN '125' [Suspect]
     Dates: start: 20100901

REACTIONS (3)
  - ALANINE AMINOTRANSFERASE INCREASED [None]
  - VAGINAL LESION [None]
  - VULVOVAGINAL PRURITUS [None]
